FAERS Safety Report 6554548-4 (Version None)
Quarter: 2010Q1

REPORT INFORMATION
  Report Type: 
  Country: None (occurrence: None)
  Receive Date: 20100127
  Receipt Date: 20100122
  Transmission Date: 20100710
  Serious: Yes (Death)
  Sender: FDA-Public Use
  Company Number: PHEH2010US01247

PATIENT

DRUGS (1)
  1. ZOMETA [Suspect]
     Dosage: 4MG/5ML DAILY
     Route: 042

REACTIONS (1)
  - DEATH [None]
